FAERS Safety Report 8989337 (Version 1)
Quarter: 2012Q4

REPORT INFORMATION
  Report Type: 
  Country: AU (occurrence: AU)
  Receive Date: 20121228
  Receipt Date: 20121228
  Transmission Date: 20130627
  Serious: Yes (Hospitalization)
  Sender: FDA-Public Use
  Company Number: AU-ACTELION-A-CH2012-64583

PATIENT
  Age: 30 Year
  Sex: Male

DRUGS (10)
  1. TRACLEER [Suspect]
     Indication: PULMONARY ARTERIAL HYPERTENSION
     Dosage: 125 mg, bid
     Route: 048
     Dates: start: 20040419, end: 20110218
  2. TRACLEER [Suspect]
     Dosage: UNK mg, UNK
     Route: 048
     Dates: start: 201204, end: 201211
  3. OXYGEN [Concomitant]
  4. FUROSEMIDE [Concomitant]
  5. DITHIAZIDE [Concomitant]
  6. CHLORVESCENT [Concomitant]
  7. SILDENAFIL [Concomitant]
  8. SOMAC [Concomitant]
  9. MOTILIUM [Concomitant]
  10. IRON [Concomitant]

REACTIONS (6)
  - Pulmonary arterial hypertension [Unknown]
  - Condition aggravated [Unknown]
  - Dyspnoea [Unknown]
  - Nausea [Unknown]
  - Vomiting [Unknown]
  - Terminal state [Unknown]
